FAERS Safety Report 9489760 (Version 8)
Quarter: 2015Q1

REPORT INFORMATION
  Report Type: Spontaneous
  Country: US (occurrence: US)
  Receive Date: 20130725
  Receipt Date: 20150211
  Transmission Date: 20150721
  Serious: Yes (Hospitalization, Other)
  Sender: FDA-Public Use
  Company Number: US-GLAXOSMITHKLINE-A1004190A

PATIENT
  Age: 60 Year
  Sex: Male
  Weight: 93 kg

DRUGS (3)
  1. AVANDIA [Suspect]
     Active Substance: ROSIGLITAZONE MALEATE
     Indication: DIABETES MELLITUS
     Dosage: 4 MG, BID
     Route: 048
     Dates: start: 200509, end: 200812
  2. AVANDAMET [Suspect]
     Active Substance: METFORMIN HYDROCHLORIDE\ROSIGLITAZONE MALEATE
     Indication: DIABETES MELLITUS
     Dosage: UNK, BID
     Route: 048
     Dates: start: 200509, end: 20110813
  3. ROSIGLITAZONE MALEATE + METFORMIN HYDROCHLORIDE [Suspect]
     Active Substance: METFORMIN HYDROCHLORIDE\ROSIGLITAZONE MALEATE
     Indication: DIABETES MELLITUS
     Dosage: UNK
     Route: 048
     Dates: start: 20101212, end: 20101217

REACTIONS (12)
  - Coronary artery disease [Unknown]
  - Bundle branch block right [Unknown]
  - Cardiac failure congestive [Unknown]
  - Bundle branch block left [Unknown]
  - Stent placement [Unknown]
  - Angina unstable [Unknown]
  - Ischaemic cardiomyopathy [Unknown]
  - Cardiac failure chronic [Unknown]
  - Pleural effusion [Unknown]
  - Mitral valve incompetence [Unknown]
  - Myocardial ischaemia [Unknown]
  - Myocardial infarction [Unknown]

NARRATIVE: CASE EVENT DATE: 201110
